FAERS Safety Report 15821197 (Version 1)
Quarter: 2019Q1

REPORT INFORMATION
  Report Type: Spontaneous
  Country: US (occurrence: US)
  Receive Date: 20190112
  Receipt Date: 20190112
  Transmission Date: 20190417
  Serious: Yes (Other)
  Sender: FDA-Public Use
  Company Number: None

PATIENT
  Age: 65 Year
  Sex: Female
  Weight: 58.5 kg

DRUGS (3)
  1. SPIRIVA RESPIMAT [Suspect]
     Active Substance: TIOTROPIUM BROMIDE
     Indication: CHRONIC OBSTRUCTIVE PULMONARY DISEASE
     Dosage: ?          OTHER STRENGTH:MCG;QUANTITY:2 PUFF(S);?
     Route: 055
  2. CELEVAMINE [Concomitant]
  3. MULTI VITAMIN DAILY [Concomitant]

REACTIONS (4)
  - Abdominal distension [None]
  - Weight loss poor [None]
  - Weight increased [None]
  - Asthenia [None]

NARRATIVE: CASE EVENT DATE: 20180109
